FAERS Safety Report 18411008 (Version 2)
Quarter: 2020Q4

REPORT INFORMATION
  Report Type: Spontaneous
  Country: US (occurrence: US)
  Receive Date: 20201021
  Receipt Date: 20201201
  Transmission Date: 20210114
  Serious: Yes (Other)
  Sender: FDA-Public Use
  Company Number: US-ASTRAZENECA-2020SF33998

PATIENT
  Age: 10 Month
  Sex: Male
  Weight: 10.7 kg

DRUGS (2)
  1. SYMBICORT [Suspect]
     Active Substance: BUDESONIDE\FORMOTEROL FUMARATE DIHYDRATE
     Indication: BRONCHIAL DISORDER
     Dosage: 160/4.5 MCG TWO PUFFS TWICE A DAY, AT 8 AM AND 8 PM
     Route: 055
     Dates: start: 202009
  2. SYMBICORT [Suspect]
     Active Substance: BUDESONIDE\FORMOTEROL FUMARATE DIHYDRATE
     Indication: BRONCHOPULMONARY DYSPLASIA
     Dosage: 160/4.5 MCG TWO PUFFS TWICE A DAY, AT 8 AM AND 8 PM
     Route: 055
     Dates: start: 202009

REACTIONS (3)
  - Intentional product misuse [Unknown]
  - Device breakage [Unknown]
  - Dependence on respirator [Unknown]

NARRATIVE: CASE EVENT DATE: 202010
